FAERS Safety Report 16132888 (Version 5)
Quarter: 2020Q1

REPORT INFORMATION
  Report Type: Spontaneous
  Country: US (occurrence: US)
  Receive Date: 20190329
  Receipt Date: 20200226
  Transmission Date: 20200409
  Serious: Yes (Hospitalization, Other)
  Sender: FDA-Public Use
  Company Number: US-SA-2019SA085088

PATIENT
  Age: 54 Year
  Sex: Female

DRUGS (33)
  1. LOVASTATIN. [Concomitant]
     Active Substance: LOVASTATIN
  2. MAGNESIUM SULFATE. [Concomitant]
     Active Substance: MAGNESIUM SULFATE
  3. FLONASE ALLERGY RELIEF [Concomitant]
     Active Substance: FLUTICASONE PROPIONATE
  4. FISH OIL [Concomitant]
     Active Substance: FISH OIL
  5. CALCIUM CITRATE + D [Concomitant]
     Active Substance: CALCIUM CITRATE\CHOLECALCIFEROL
  6. ZETIA [Concomitant]
     Active Substance: EZETIMIBE
  7. RANITIDINE HCL [Concomitant]
     Active Substance: RANITIDINE HYDROCHLORIDE
  8. NARCAN [Concomitant]
     Active Substance: NALOXONE HYDROCHLORIDE
  9. ACYCLOVIR [ACICLOVIR] [Concomitant]
     Active Substance: ACYCLOVIR
  10. METOPROLOL SUCCINATE. [Concomitant]
     Active Substance: METOPROLOL SUCCINATE
  11. DUPIXENT [Suspect]
     Active Substance: DUPILUMAB
     Indication: ASTHMA
  12. PATANOL [Concomitant]
     Active Substance: OLOPATADINE HYDROCHLORIDE
     Route: 050
  13. NYSTATIN. [Concomitant]
     Active Substance: NYSTATIN
     Route: 048
  14. VITAMIN D2 [Concomitant]
     Active Substance: ERGOCALCIFEROL
  15. CHLORPHENIRAMINE MALEATE. [Concomitant]
     Active Substance: CHLORPHENIRAMINE MALEATE
  16. BENADRYL [Concomitant]
     Active Substance: DIPHENHYDRAMINE HYDROCHLORIDE
  17. METFORMIN ER [Concomitant]
     Active Substance: METFORMIN HYDROCHLORIDE
  18. AMITIZA [Concomitant]
     Active Substance: LUBIPROSTONE
  19. ALLEGRA ALLERGY [Concomitant]
     Active Substance: FEXOFENADINE HYDROCHLORIDE
  20. BREO ELLIPTA [Concomitant]
     Active Substance: FLUTICASONE FUROATE\VILANTEROL TRIFENATATE
  21. ZOFRAN [Concomitant]
     Active Substance: ONDANSETRON HYDROCHLORIDE
  22. CYANOCOBALAMIN. [Concomitant]
     Active Substance: CYANOCOBALAMIN
  23. NORCO [Concomitant]
     Active Substance: ACETAMINOPHEN\HYDROCODONE BITARTRATE
  24. NYSTATIN. [Concomitant]
     Active Substance: NYSTATIN
  25. SINGULAIR [Concomitant]
     Active Substance: MONTELUKAST SODIUM
  26. LISINOPRIL. [Concomitant]
     Active Substance: LISINOPRIL
  27. FUROSEMIDE. [Concomitant]
     Active Substance: FUROSEMIDE
  28. PROLIA [Concomitant]
     Active Substance: DENOSUMAB
  29. DUPIXENT [Suspect]
     Active Substance: DUPILUMAB
     Indication: DERMATITIS
     Dosage: 300 MG, QOW
     Route: 058
     Dates: start: 20190226
  30. PREDNISONE. [Concomitant]
     Active Substance: PREDNISONE
  31. PROVENTIL HFA [SALBUTAMOL] [Concomitant]
  32. IPRATROPIUM/ALBUTEROL [Concomitant]
     Active Substance: ALBUTEROL\IPRATROPIUM
  33. ASPIRIN [ACETYLSALICYLIC ACID] [Concomitant]
     Active Substance: ASPIRIN

REACTIONS (14)
  - Gastrointestinal infection [Unknown]
  - Arthralgia [Unknown]
  - Fall [Unknown]
  - Malaise [Unknown]
  - Thermal burn [Unknown]
  - Diarrhoea [Unknown]
  - Sinusitis [Unknown]
  - Pyrexia [Unknown]
  - Infection [Unknown]
  - Graft infection [Unknown]
  - Pain in extremity [Unknown]
  - Skin graft [Unknown]
  - Cellulitis [Unknown]
  - Headache [Unknown]

NARRATIVE: CASE EVENT DATE: 201902
